FAERS Safety Report 8594065-3 (Version None)
Quarter: 2012Q3

REPORT INFORMATION
  Report Type: 
  Country: None (occurrence: None)
  Receive Date: 20120814
  Receipt Date: 20120806
  Transmission Date: 20120928
  Serious: Yes (Hospitalization, Other)
  Sender: FDA-Public Use
  Company Number: PHHO2010ES14019

PATIENT
  Sex: Male
  Weight: 60 kg

DRUGS (14)
  1. DIGOXIN [Suspect]
     Dosage: UNK
     Dates: end: 20100928
  2. BLINDED ALISKIREN [Suspect]
     Indication: CARDIOVASCULAR DISORDER
     Dosage: CODE NOT BROKEN
     Route: 048
     Dates: start: 20081127, end: 20100914
  3. FUROSEMIDE [Concomitant]
     Indication: HYPERTENSION
     Dosage: 20 MG, ONCE/SINGLE
     Route: 048
     Dates: start: 20120710, end: 20120802
  4. BLINDED ALISKIREN [Suspect]
     Dosage: CODE NOT BROKEN
     Route: 048
     Dates: start: 20100928, end: 20111222
  5. PLACEBO [Suspect]
     Dosage: CODE NOT BROKEN
     Route: 048
     Dates: start: 20100928, end: 20111222
  6. BLINDED NO TREATMENT RECEIVED [Suspect]
     Dosage: CODE NOT BROKEN
     Route: 048
     Dates: start: 20100928, end: 20111222
  7. GLICLAZIDE [Concomitant]
     Indication: DIABETES MELLITUS
  8. LOSARTAN POTASSIUM AND HYDROCHLOROTHIAZIDE [Concomitant]
     Indication: HYPERTENSION
  9. BLINDED NO TREATMENT RECEIVED [Suspect]
     Indication: CARDIOVASCULAR DISORDER
     Dosage: CODE NOT BROKEN
     Route: 048
     Dates: start: 20081127, end: 20100914
  10. TAMSULOSIN HCL [Concomitant]
     Indication: BENIGN PROSTATIC HYPERPLASIA
     Dosage: 0.4 MG, ONCE/SINGLE
     Route: 048
     Dates: start: 20070919
  11. LANTUS [Concomitant]
     Indication: DIABETES MELLITUS
     Dosage: 16 IU, ONCE/SINGLE
     Dates: start: 20100215
  12. SINTROM [Concomitant]
     Indication: ATRIAL FIBRILLATION
     Dosage: UNK
     Route: 048
     Dates: start: 20100928
  13. PLACEBO [Suspect]
     Indication: CARDIOVASCULAR DISORDER
     Dosage: CODE NOT BROKEN
     Route: 048
     Dates: start: 20081127, end: 20100914
  14. LORAZEPAM [Concomitant]
     Indication: INSOMNIA
     Dosage: 1 MG, ONCE/SINGLE
     Route: 048
     Dates: start: 20070130

REACTIONS (8)
  - DYSPNOEA [None]
  - ATRIAL FIBRILLATION [None]
  - RESPIRATORY TRACT INFECTION [None]
  - NECK PAIN [None]
  - NAUSEA [None]
  - DIARRHOEA [None]
  - MALAISE [None]
  - BACK PAIN [None]
